FAERS Safety Report 20539370 (Version 1)
Quarter: 2022Q1

REPORT INFORMATION
  Report Type: Spontaneous
  Country: JP (occurrence: JP)
  Receive Date: 20220302
  Receipt Date: 20220302
  Transmission Date: 20220424
  Serious: Yes (Other)
  Sender: FDA-Public Use
  Company Number: JP-BAYER-2021-164665

PATIENT
  Age: 63 Year
  Sex: Male
  Weight: 110.3 kg

DRUGS (11)
  1. XARELTO [Interacting]
     Active Substance: RIVAROXABAN
     Indication: Atrial fibrillation
     Dosage: DAILY DOSE 15 MG
     Route: 048
     Dates: start: 20210420, end: 20210715
  2. XARELTO [Interacting]
     Active Substance: RIVAROXABAN
     Indication: Cerebrovascular accident prophylaxis
     Route: 048
  3. XARELTO [Interacting]
     Active Substance: RIVAROXABAN
     Indication: Thrombosis prophylaxis
     Route: 048
  4. LOXOPROFEN SODIUM [Interacting]
     Active Substance: LOXOPROFEN SODIUM
     Indication: Cervicobrachial syndrome
     Dosage: DAILY DOSE 180 MG
     Route: 048
     Dates: start: 20090612
  5. BEPRIDIL [Concomitant]
     Active Substance: BEPRIDIL
     Indication: Atrial fibrillation
     Dosage: DAILY DOSE 150MG
     Route: 048
     Dates: start: 20200403
  6. LIPITOR [Concomitant]
     Active Substance: ATORVASTATIN CALCIUM
     Indication: Hypercholesterolaemia
     Dosage: DAILY DOSE 5 MG
     Route: 048
     Dates: start: 20100927
  7. MICARDIS [Concomitant]
     Active Substance: TELMISARTAN
     Indication: Hypertension
     Dosage: DAILY DOSE 40MG
     Route: 048
     Dates: start: 20140904
  8. BISOPROLOL FUMARATE [Concomitant]
     Active Substance: BISOPROLOL FUMARATE
     Indication: Atrial fibrillation
     Dosage: DAILY DOSE 2.5 MG
     Route: 048
     Dates: start: 20190411
  9. ETHYL LOFLAZEPATE [Concomitant]
     Active Substance: ETHYL LOFLAZEPATE
     Indication: Anxiety disorder
     Dosage: DAILY DOSE 1 MG
     Route: 048
     Dates: start: 20090220
  10. CONTOL [CHLORDIAZEPOXIDE HYDROCHLORIDE] [Concomitant]
     Indication: Anxiety disorder
     Dosage: DAILY DOSE 15 MG
     Route: 048
     Dates: start: 20090612
  11. ROBAXIN [Concomitant]
     Active Substance: METHOCARBAMOL
     Indication: Cervicobrachial syndrome
     Dosage: DAILY DOSE 0.75 G
     Route: 048
     Dates: start: 20090612

REACTIONS (2)
  - Haemorrhage subcutaneous [Recovered/Resolved]
  - Labelled drug-drug interaction medication error [Unknown]

NARRATIVE: CASE EVENT DATE: 20210401
